FAERS Safety Report 24744359 (Version 5)
Quarter: 2025Q4

REPORT INFORMATION
  Report Type: Spontaneous
  Country: JP (occurrence: JP)
  Receive Date: 20241217
  Receipt Date: 20251224
  Transmission Date: 20260118
  Serious: Yes (Death, Hospitalization)
  Sender: ABBVIE
  Company Number: JP-ABBVIE-6050160

PATIENT
  Age: 63 Year
  Sex: Male
  Weight: 60 kg

DRUGS (7)
  1. HUMIRA [Suspect]
     Active Substance: ADALIMUMAB
     Indication: Colitis ulcerative
     Dosage: DOSE FORM- SOLUTION FOR INJECTION IN PRE-FILLED PEN
     Route: 058
     Dates: start: 20230314
  2. HUMIRA [Suspect]
     Active Substance: ADALIMUMAB
     Dosage: DOSE FORM- SOLUTION FOR INJECTION IN PRE-FILLED PEN
     Route: 058
     Dates: start: 20230411
  3. HUMIRA [Suspect]
     Active Substance: ADALIMUMAB
     Dosage: DOSE FORM- SOLUTION FOR INJECTION IN PRE-FILLED PEN
     Route: 058
     Dates: start: 20230721
  4. HUMIRA [Suspect]
     Active Substance: ADALIMUMAB
     Dosage: DOSE FORM- SOLUTION FOR INJECTION IN PRE-FILLED PEN
     Route: 058
     Dates: start: 20230328
  5. RABEPRAZOLE SODIUM [Concomitant]
     Active Substance: RABEPRAZOLE SODIUM
     Indication: Gastrooesophageal reflux disease
     Dosage: 10 MILLIGRAM
     Route: 048
     Dates: start: 20211228
  6. BIFIDOBACTERIUM BIFIDUM [Concomitant]
     Active Substance: BIFIDOBACTERIUM BIFIDUM
     Indication: Colitis ulcerative
     Dosage: TIME INTERVAL: 0.33333333 DAYS: 3 GRAM
     Route: 048
     Dates: start: 20211228
  7. MESALAMINE [Concomitant]
     Active Substance: MESALAMINE
     Indication: Colitis ulcerative
     Dosage: 4000 MILLIGRAM
     Route: 048
     Dates: start: 20211228

REACTIONS (7)
  - Pancreatic carcinoma [Fatal]
  - Metastases to liver [Fatal]
  - Metastases to lung [Fatal]
  - Colitis ulcerative [Recovering/Resolving]
  - Haematochezia [Recovered/Resolved]
  - Frequent bowel movements [Not Recovered/Not Resolved]
  - Diarrhoea [Unknown]

NARRATIVE: CASE EVENT DATE: 20230601
